FAERS Safety Report 22001396 (Version 2)
Quarter: 2023Q1

REPORT INFORMATION
  Report Type: Spontaneous
  Country: CN (occurrence: CN)
  Receive Date: 20230216
  Receipt Date: 20230220
  Transmission Date: 20230418
  Serious: No
  Sender: FDA-Public Use
  Company Number: CN-SA-SAC20230214001619

PATIENT
  Age: 66 Year
  Sex: Male
  Weight: 54 kg

DRUGS (3)
  1. OXALIPLATIN [Suspect]
     Active Substance: OXALIPLATIN
     Indication: Colon cancer
     Dosage: 100 MG, QD
     Route: 041
     Dates: start: 20221226, end: 20221226
  2. CAPECITABINE [Concomitant]
     Active Substance: CAPECITABINE
     Indication: Colon cancer
     Dosage: 1 G, BID
     Route: 048
     Dates: start: 20221226, end: 20221231
  3. DEXTROSE [Concomitant]
     Active Substance: DEXTROSE
     Indication: Vehicle solution use
     Dosage: 250 ML, QD
     Route: 041
     Dates: start: 20221226, end: 20221226

REACTIONS (2)
  - Nausea [Recovering/Resolving]
  - Vomiting [Recovering/Resolving]

NARRATIVE: CASE EVENT DATE: 20221226
